FAERS Safety Report 19437154 (Version 1)
Quarter: 2021Q2

REPORT INFORMATION
  Report Type: Spontaneous
  Country: IS (occurrence: IS)
  Receive Date: 20210618
  Receipt Date: 20210618
  Transmission Date: 20210717
  Serious: Yes (Death, Hospitalization, Other)
  Sender: FDA-Public Use
  Company Number: IS-B.I. PHARMACEUTICALS,INC./RIDGEFIELD-2021-BI-110065

PATIENT
  Sex: Male

DRUGS (12)
  1. MORPHINE [Concomitant]
     Active Substance: MORPHINE
     Indication: PRODUCT USED FOR UNKNOWN INDICATION
     Dosage: DOSAGE: AS NEEDED?TREATMENT START AND END DATE: UNKNOWN
     Route: 065
  2. HEMINEVRIN [CLOMETHIAZOLE] [Concomitant]
     Active Substance: CLOMETHIAZOLE
     Indication: PRODUCT USED FOR UNKNOWN INDICATION
     Dosage: DOSAGE, TREATMENT START AND END DATE: UNKNOWN
     Route: 065
  3. SELOKEN [METOPROLOL TARTRATE] [Concomitant]
     Active Substance: METOPROLOL TARTRATE
     Indication: PRODUCT USED FOR UNKNOWN INDICATION
     Dosage: DOSAGE, TREATMENT START AND END DATE: UNKNOWN
     Route: 065
  4. CONTALGIN [Concomitant]
     Active Substance: MORPHINE SULFATE
     Indication: PRODUCT USED FOR UNKNOWN INDICATION
     Dosage: DOSAGE, TREATMENT START AND END DATE: UNKNOWN
     Route: 065
  5. SOBRIL [Concomitant]
     Active Substance: OXAZEPAM
     Indication: PRODUCT USED FOR UNKNOWN INDICATION
     Dosage: DOSAGE, TREATMENT START AND END DATE: UNKNOWN
     Route: 065
  6. ISMO [Concomitant]
     Active Substance: ISOSORBIDE MONONITRATE
     Indication: PRODUCT USED FOR UNKNOWN INDICATION
     Dosage: DOSAGE, TREATMENT START AND END DATE: UNKNOWN
     Route: 065
  7. OXYGEN. [Concomitant]
     Active Substance: OXYGEN
     Indication: PRODUCT USED FOR UNKNOWN INDICATION
     Dosage: DOSAGE, TREATMENT START AND END DATE: UNKNOWN
     Route: 065
  8. OFEV [Suspect]
     Active Substance: NINTEDANIB
     Indication: IDIOPATHIC PULMONARY FIBROSIS
     Dosage: TREATMENT ENDED WHEN PATIENT STARTED ANTICOAGULANT THERAPY (PLAVIX (CLOPIDOGREL) AND XARELTO (RIVARO
     Route: 065
  9. ATACOR [Concomitant]
     Active Substance: ATORVASTATIN CALCIUM
     Indication: PRODUCT USED FOR UNKNOWN INDICATION
     Dosage: DOSAGE, TREATMENT START AND END DATE: UNKNOWN
     Route: 065
  10. FURIX [FUROSEMIDE] [Concomitant]
     Active Substance: FUROSEMIDE
     Indication: PRODUCT USED FOR UNKNOWN INDICATION
     Dosage: DOSAGE, TREATMENT START AND END DATE: UNKNOWN
     Route: 065
  11. AFIPRAN [Concomitant]
     Active Substance: METOCLOPRAMIDE HYDROCHLORIDE
     Indication: PRODUCT USED FOR UNKNOWN INDICATION
     Dosage: DOSAGE, TREATMENT START AND END DATE: UNKNOWN
     Route: 065
  12. MIRON [Concomitant]
     Indication: PRODUCT USED FOR UNKNOWN INDICATION
     Dosage: DOSAGE, TREATMENT START AND END DATE: UNKNOWN
     Route: 065

REACTIONS (1)
  - Idiopathic pulmonary fibrosis [Fatal]
